FAERS Safety Report 16474510 (Version 1)
Quarter: 2019Q2

REPORT INFORMATION
  Report Type: Spontaneous
  Country: US (occurrence: US)
  Receive Date: 20190625
  Receipt Date: 20190625
  Transmission Date: 20190711
  Serious: Yes (Other)
  Sender: FDA-Public Use
  Company Number: US-SUNOVION-2019SUN002625

PATIENT
  Age: 38 Year
  Sex: Female
  Weight: 147.39 kg

DRUGS (1)
  1. LATUDA [Suspect]
     Active Substance: LURASIDONE HYDROCHLORIDE
     Indication: BIPOLAR I DISORDER
     Dosage: 1 DF, HS
     Route: 048

REACTIONS (2)
  - Weight decreased [Unknown]
  - Weight increased [Recovering/Resolving]
